FAERS Safety Report 25953092 (Version 1)
Quarter: 2025Q4

REPORT INFORMATION
  Report Type: Spontaneous
  Country: AR (occurrence: AR)
  Receive Date: 20251023
  Receipt Date: 20251023
  Transmission Date: 20260118
  Serious: Yes (Hospitalization, Other)
  Sender: PFIZER
  Company Number: AR-PFIZER INC-PV202500123940

PATIENT
  Age: 22 Year

DRUGS (5)
  1. RITUXIMAB [Suspect]
     Active Substance: RITUXIMAB
     Indication: Dermatomyositis
     Dosage: UNK
     Dates: start: 202502
  2. METHYLPREDNISOLONE SODIUM SUCCINATE [Suspect]
     Active Substance: METHYLPREDNISOLONE SODIUM SUCCINATE
     Indication: Dermatomyositis
     Dosage: UNK
     Route: 042
     Dates: start: 2024
  3. METHOTREXATE SODIUM [Suspect]
     Active Substance: METHOTREXATE SODIUM
     Indication: Dermatomyositis
     Dosage: UNK
     Route: 058
     Dates: start: 2024
  4. PREDNISONE [Suspect]
     Active Substance: PREDNISONE
     Indication: Dermatomyositis
     Dosage: UNK
     Route: 048
     Dates: start: 2024
  5. FOLIC ACID [Suspect]
     Active Substance: FOLIC ACID
     Indication: Dermatomyositis
     Dosage: UNK
     Dates: start: 2024

REACTIONS (10)
  - Seizure [Unknown]
  - Nervous system disorder [Unknown]
  - Headache [Unknown]
  - Vomiting [Unknown]
  - Generalised tonic-clonic seizure [Unknown]
  - IIIrd nerve paralysis [Unknown]
  - Nystagmus [Unknown]
  - Paresis [Unknown]
  - Histoplasmosis [Unknown]
  - Off label use [Unknown]

NARRATIVE: CASE EVENT DATE: 20250401
